FAERS Safety Report 5485666-X (Version None)
Quarter: 2007Q4

REPORT INFORMATION
  Report Type: 
  Country: None (occurrence: None)
  Receive Date: 20071011
  Receipt Date: 20071011
  Transmission Date: 20080405
  Serious: Yes (Life-Threatening)
  Sender: FDA-Public Use
  Company Number: None

PATIENT
  Sex: Female
  Weight: 108.8633 kg

DRUGS (3)
  1. AMBIEN CR [Suspect]
     Indication: SLEEP DISORDER
     Dates: start: 20060731, end: 20060831
  2. AMBIEN CR [Suspect]
     Indication: STRESS
     Dates: start: 20060731, end: 20060831
  3. CLARIDEN D [Concomitant]

REACTIONS (4)
  - DEPRESSION [None]
  - DRUG INEFFECTIVE [None]
  - MALAISE [None]
  - SUICIDAL IDEATION [None]
